FAERS Safety Report 13717358 (Version 1)
Quarter: 2017Q3

REPORT INFORMATION
  Report Type: Spontaneous
  Country: US (occurrence: US)
  Receive Date: 20170704
  Receipt Date: 20170704
  Transmission Date: 20171127
  Serious: Yes (Hospitalization)
  Sender: FDA-Public Use
  Company Number: None

PATIENT
  Age: 62 Year
  Sex: Male
  Weight: 89.18 kg

DRUGS (1)
  1. AMOXICILLIN/CLAVULANATE [Suspect]
     Active Substance: AMOXICILLIN\CLAVULANATE POTASSIUM
     Indication: SINUSITIS
     Dosage: 875/125 MG BID PO
     Route: 048
     Dates: start: 20170426, end: 20170427

REACTIONS (2)
  - Angioedema [None]
  - Drug hypersensitivity [None]

NARRATIVE: CASE EVENT DATE: 20170427
